FAERS Safety Report 23264320 (Version 3)
Quarter: 2023Q4

REPORT INFORMATION
  Report Type: Spontaneous
  Country: US (occurrence: US)
  Receive Date: 20231205
  Receipt Date: 20231213
  Transmission Date: 20240110
  Serious: Yes (Other)
  Sender: FDA-Public Use
  Company Number: US-PFIZER INC-PV202300197012

PATIENT
  Age: 64 Year
  Sex: Female
  Weight: 76.7 kg

DRUGS (3)
  1. IBRANCE [Suspect]
     Active Substance: PALBOCICLIB
     Indication: Breast cancer female
     Dosage: TAKE 1 CAPSULE (100 MG) FOR DAYS 1-21, THEN 7 DAYS OFF
     Route: 048
     Dates: start: 20180413
  2. IBRANCE [Suspect]
     Active Substance: PALBOCICLIB
     Indication: Breast cancer stage IV
  3. ANASTROZOLE [Suspect]
     Active Substance: ANASTROZOLE
     Dosage: UNK
     Dates: start: 20180413

REACTIONS (4)
  - Cytopenia [Unknown]
  - Thrombocytopenia [Unknown]
  - Breast cellulitis [Unknown]
  - Cellulitis [Unknown]
